FAERS Safety Report 16134809 (Version 2)
Quarter: 2019Q2

REPORT INFORMATION
  Report Type: Spontaneous
  Country: US (occurrence: US)
  Receive Date: 20190329
  Receipt Date: 20190521
  Transmission Date: 20190711
  Serious: No
  Sender: FDA-Public Use
  Company Number: US-BAYER-2019-061253

PATIENT
  Age: 59 Year
  Sex: Female
  Weight: 55.78 kg

DRUGS (4)
  1. FROVA [Suspect]
     Active Substance: FROVATRIPTAN SUCCINATE
  2. GOCOVRI [Suspect]
     Active Substance: AMANTADINE
     Indication: PARKINSON^S DISEASE
     Dosage: 137 MG, QD
     Route: 048
     Dates: start: 20180608
  3. MARINOL [Concomitant]
     Active Substance: DRONABINOL
  4. MIRALAX [Suspect]
     Active Substance: POLYETHYLENE GLYCOL 3350
     Indication: BOWEL PREPARATION
     Dosage: UNK
     Dates: start: 201901, end: 201901

REACTIONS (3)
  - Off label use [Unknown]
  - Vomiting [Unknown]
  - Product use in unapproved indication [Unknown]

NARRATIVE: CASE EVENT DATE: 201812
